FAERS Safety Report 22225355 (Version 2)
Quarter: 2023Q2

REPORT INFORMATION
  Report Type: Report from Study
  Country: US (occurrence: US)
  Receive Date: 20230418
  Receipt Date: 20230503
  Transmission Date: 20230721
  Serious: Yes (Other)
  Sender: FDA-Public Use
  Company Number: US-ABBVIE-4729559

PATIENT
  Sex: Male

DRUGS (2)
  1. LUPRON [Suspect]
     Active Substance: LEUPROLIDE ACETATE
     Indication: Prostate cancer
     Route: 030
     Dates: start: 202301
  2. LUPRON [Suspect]
     Active Substance: LEUPROLIDE ACETATE

REACTIONS (6)
  - Antiandrogen therapy [Unknown]
  - Asthenia [Unknown]
  - Skin wrinkling [Unknown]
  - Fatigue [Unknown]
  - Depression [Not Recovered/Not Resolved]
  - Mood altered [Unknown]
